FAERS Safety Report 7986338-X (Version None)
Quarter: 2011Q4

REPORT INFORMATION
  Report Type: 
  Country: None (occurrence: None)
  Receive Date: 20111216
  Receipt Date: 20110712
  Transmission Date: 20120403
  Serious: No
  Sender: FDA-Public Use
  Company Number: US-BRISTOL-MYERS SQUIBB COMPANY-15896038

PATIENT
  Age: 43 Year
  Sex: Female

DRUGS (2)
  1. ABILIFY [Suspect]
     Indication: DEPRESSION
  2. CYMBALTA [Suspect]
     Indication: DEPRESSION
     Dosage: AT DOSAGE OF 120 AS MONOTHERAPY AND REDUCED TO 60MG WITH ADJUVANT THERAPY

REACTIONS (1)
  - BLOOD GLUCOSE INCREASED [None]
